FAERS Safety Report 18752257 (Version 1)
Quarter: 2021Q1

REPORT INFORMATION
  Report Type: Spontaneous
  Country: US (occurrence: US)
  Receive Date: 20210118
  Receipt Date: 20210118
  Transmission Date: 20210419
  Serious: No
  Sender: FDA-Public Use
  Company Number: US-FOUNDATIONCONSUMERHC-2020-US-022567

PATIENT
  Age: 16 Year
  Sex: Female

DRUGS (1)
  1. PLAN B ONE?STEP [Suspect]
     Active Substance: LEVONORGESTREL
     Indication: POST COITAL CONTRACEPTION
     Dosage: 1.5MG X 2 DOSES
     Route: 048
     Dates: start: 20201027, end: 20201028

REACTIONS (3)
  - Product use in unapproved indication [Recovered/Resolved]
  - Intentional product misuse [Recovered/Resolved]
  - Vaginal haemorrhage [Not Recovered/Not Resolved]

NARRATIVE: CASE EVENT DATE: 20201028
